FAERS Safety Report 21390155 (Version 1)
Quarter: 2022Q3

REPORT INFORMATION
  Report Type: Spontaneous
  Country: HR (occurrence: HR)
  Receive Date: 20220929
  Receipt Date: 20220929
  Transmission Date: 20221026
  Serious: Yes (Hospitalization, Other)
  Sender: FDA-Public Use
  Company Number: HR-PHARMAS-2022-0152

PATIENT
  Sex: Male

DRUGS (4)
  1. HALDOL [Suspect]
     Active Substance: HALOPERIDOL
     Indication: Product used for unknown indication
     Dosage: 9 MG/DAY
     Route: 065
  2. OLANZAPINE [Suspect]
     Active Substance: OLANZAPINE
     Indication: Product used for unknown indication
     Dosage: 20 MG/DAY
     Route: 065
  3. BIPERIDEN [Suspect]
     Active Substance: BIPERIDEN
     Indication: Product used for unknown indication
     Dosage: 2 MG/DAY
     Route: 065
  4. LEVOMEPROMAZINE [Suspect]
     Active Substance: LEVOMEPROMAZINE
     Indication: Product used for unknown indication
     Route: 065

REACTIONS (7)
  - Body temperature increased [Recovering/Resolving]
  - Muscle disorder [Recovering/Resolving]
  - Behaviour disorder [Recovering/Resolving]
  - Autonomic nervous system imbalance [Recovering/Resolving]
  - Psychotic disorder [Recovering/Resolving]
  - Psychomotor hyperactivity [Recovering/Resolving]
  - Altered state of consciousness [Recovering/Resolving]
